FAERS Safety Report 12156414 (Version 2)
Quarter: 2016Q1

REPORT INFORMATION
  Report Type: Spontaneous
  Country: FR (occurrence: FR)
  Receive Date: 20160307
  Receipt Date: 20160310
  Transmission Date: 20160526
  Serious: Yes (Death)
  Sender: FDA-Public Use
  Company Number: FR-SA-2016SA037810

PATIENT
  Age: 92 Year
  Sex: Female

DRUGS (11)
  1. DAFALGAN [Concomitant]
     Active Substance: ACETAMINOPHEN
     Route: 048
  2. PANTOPRAZOLE [Concomitant]
     Active Substance: PANTOPRAZOLE SODIUM
     Route: 048
  3. AVLOCARDYL [Concomitant]
     Active Substance: PROPRANOLOL HYDROCHLORIDE
     Route: 048
  4. KARDEGIC [Suspect]
     Active Substance: ASPIRIN LYSINE
     Route: 048
  5. CORDARONE [Concomitant]
     Active Substance: AMIODARONE HYDROCHLORIDE
     Route: 048
  6. LERCAN [Concomitant]
     Active Substance: LERCANIDIPINE
     Route: 048
  7. ELIQUIS [Suspect]
     Active Substance: APIXABAN
     Route: 048
     Dates: start: 201505, end: 20160126
  8. LAROXYL [Concomitant]
     Active Substance: AMITRIPTYLINE
     Route: 048
  9. DIAFUSOR [Concomitant]
     Active Substance: NITROGLYCERIN
     Route: 062
  10. LOVENOX [Suspect]
     Active Substance: ENOXAPARIN SODIUM
     Route: 058
     Dates: start: 20160119, end: 20160121
  11. LEVOTHYROX [Concomitant]
     Active Substance: LEVOTHYROXINE
     Route: 048

REACTIONS (2)
  - Retroperitoneal haematoma [Fatal]
  - Anaemia [Recovered/Resolved]

NARRATIVE: CASE EVENT DATE: 20160119
